FAERS Safety Report 25763995 (Version 1)
Quarter: 2025Q3

REPORT INFORMATION
  Report Type: Spontaneous
  Country: IN (occurrence: IN)
  Receive Date: 20250905
  Receipt Date: 20250905
  Transmission Date: 20251021
  Serious: Yes (Other)
  Sender: TWI PHARMACEUTICALS
  Company Number: IN-TWI PHARMACEUTICAL, INC-20250801137

PATIENT
  Age: 60 Year
  Sex: Female

DRUGS (2)
  1. FLUOXETINE [Suspect]
     Active Substance: FLUOXETINE HYDROCHLORIDE
     Indication: Illness
     Route: 065
  2. FLUOXETINE [Suspect]
     Active Substance: FLUOXETINE HYDROCHLORIDE
     Route: 065

REACTIONS (2)
  - Hepatic cirrhosis [Recovering/Resolving]
  - Metabolic dysfunction-associated steatohepatitis [Recovering/Resolving]
